FAERS Safety Report 4321849-X (Version None)
Quarter: 2004Q1

REPORT INFORMATION
  Report Type: 
  Country: None (occurrence: None)
  Receive Date: 20040322
  Receipt Date: 20040107
  Transmission Date: 20041129
  Serious: Yes (Other)
  Sender: FDA-Public Use
  Company Number: A-US2004-04211

PATIENT
  Age: 72 Year
  Sex: Female

DRUGS (14)
  1. TRACLEER [Suspect]
     Indication: PULMONARY HYPERTENSION
     Dosage: 62.5 MG, BID, ORAL; 125 MG, BID, ORAL
     Route: 048
     Dates: start: 20020601
  2. TRENTAL [Concomitant]
  3. SINGULAIR [Concomitant]
  4. ADVAIR DISKUS 100/50 [Concomitant]
  5. NASONEX [Concomitant]
  6. NEXIUM [Concomitant]
  7. ALBUTEROL [Concomitant]
  8. ATROVENT [Concomitant]
  9. ACTINEL [Concomitant]
  10. GUAIFENESIN (GUAIFENESIN) [Concomitant]
  11. NOTUSS  (HYDROCODONE, CHLORPHENAMINE) [Concomitant]
  12. CALCIUM  (CALCIUM) [Concomitant]
  13. MULTI-VITAMINS [Concomitant]
  14. OXYGEN (OXYGEN) [Concomitant]

REACTIONS (3)
  - ALANINE AMINOTRANSFERASE INCREASED [None]
  - ASPARTATE AMINOTRANSFERASE INCREASED [None]
  - LIVER FUNCTION TEST ABNORMAL [None]
